FAERS Safety Report 4602997-3 (Version None)
Quarter: 2005Q1

REPORT INFORMATION
  Report Type: 
  Country: None (occurrence: None)
  Receive Date: 20050309
  Receipt Date: 20050104
  Transmission Date: 20050727
  Serious: Yes (Other)
  Sender: FDA-Public Use
  Company Number: PHFR2005GB00457

PATIENT
  Age: 58 Year
  Sex: 0

DRUGS (3)
  1. HYDROXYZINE [Concomitant]
     Dosage: 25MG/DAY
     Route: 048
  2. VALPROATE SODIUM [Concomitant]
     Dosage: UNK, UNK
  3. CLOZARIL [Suspect]
     Indication: SCHIZOPHRENIA
     Dosage: 650MG/DAY
     Route: 048
     Dates: start: 19920713, end: 20050104

REACTIONS (4)
  - GRAND MAL CONVULSION [None]
  - HAEMATEMESIS [None]
  - PYREXIA [None]
  - RASH ERYTHEMATOUS [None]
